FAERS Safety Report 14564007 (Version 1)
Quarter: 2018Q1

REPORT INFORMATION
  Report Type: Spontaneous
  Country: US (occurrence: US)
  Receive Date: 20180222
  Receipt Date: 20180222
  Transmission Date: 20180509
  Serious: No
  Sender: FDA-Public Use
  Company Number: US-TAIHO ONCOLOGY INC-EU-2018-00223

PATIENT
  Sex: Male
  Weight: 114.41 kg

DRUGS (6)
  1. RAPAFLO [Concomitant]
     Active Substance: SILODOSIN
     Dosage: NI
  2. SIMVASTATIN. [Concomitant]
     Active Substance: SIMVASTATIN
     Dosage: NI
  3. JANUVIA [Concomitant]
     Active Substance: SITAGLIPTIN PHOSPHATE
     Dosage: NI
  4. LONSURF [Suspect]
     Active Substance: TIPIRACIL HYDROCHLORIDE\TRIFLURIDINE
     Indication: COLON CANCER
     Dosage: CURRENT CYCLE 4
     Route: 048
     Dates: start: 20171009, end: 20180212
  5. GABAPENTIN. [Concomitant]
     Active Substance: GABAPENTIN
     Dosage: NI
  6. GLIBENCLAMIDE [Concomitant]
     Active Substance: GLYBURIDE
     Dosage: NI

REACTIONS (1)
  - Disease progression [Unknown]
